FAERS Safety Report 7337438-9 (Version None)
Quarter: 2011Q1

REPORT INFORMATION
  Report Type: 
  Country: None (occurrence: None)
  Receive Date: 20110308
  Receipt Date: 20110227
  Transmission Date: 20110831
  Serious: Yes (Other)
  Sender: FDA-Public Use
  Company Number: US-RB-022109-11

PATIENT
  Age: 3 Year
  Sex: Male

DRUGS (1)
  1. DELSYM [Suspect]
     Dosage: 2.5ML 2ND DOSE IN 12 HOURS
     Route: 048
     Dates: start: 20110226

REACTIONS (1)
  - EPISTAXIS [None]
